FAERS Safety Report 4933051-9 (Version None)
Quarter: 2006Q1

REPORT INFORMATION
  Report Type: 
  Country: None (occurrence: None)
  Receive Date: 20060301
  Receipt Date: 20060214
  Transmission Date: 20060701
  Serious: Yes (Death)
  Sender: FDA-Public Use
  Company Number: 2006S1001350

PATIENT
  Age: 46 Year
  Sex: Male

DRUGS (2)
  1. CLOZAPINE [Suspect]
     Dosage: 75 MG;QD;ORAL
     Route: 048
     Dates: start: 20011101, end: 20060101
  2. CLOZAPINE [Suspect]
     Dosage: 600 MG;QD;ORAL
     Route: 048
     Dates: start: 20011101, end: 20060101

REACTIONS (1)
  - DEATH [None]
